FAERS Safety Report 11123893 (Version 5)
Quarter: 2015Q2

REPORT INFORMATION
  Report Type: Spontaneous
  Country: FR (occurrence: FR)
  Receive Date: 20150520
  Receipt Date: 20150610
  Transmission Date: 20150821
  Serious: Yes (Hospitalization, Other)
  Sender: FDA-Public Use
  Company Number: FR-AMGEN-FRASP2015046957

PATIENT
  Age: 53 Year
  Sex: Male

DRUGS (28)
  1. MABTHERA [Suspect]
     Active Substance: RITUXIMAB
     Dosage: 780 MG, UNK
     Route: 042
     Dates: start: 20150330, end: 20150402
  2. PARACETAMOL [Concomitant]
     Active Substance: ACETAMINOPHEN
     Dosage: 1 MG, UNK
     Route: 065
     Dates: start: 20150330, end: 20150402
  3. ZOPHREN                            /00955301/ [Concomitant]
     Active Substance: ONDANSETRON
     Dosage: 80 MG, 2 IN 1 D
     Dates: start: 20150330, end: 20150402
  4. AUGMENTIN [Suspect]
     Active Substance: AMOXICILLIN\CLAVULANATE POTASSIUM
     Indication: PRODUCT USED FOR UNKNOWN INDICATION
     Dosage: 1 G, UNK
     Route: 048
     Dates: start: 20150311, end: 20150312
  5. ZYLORIC [Suspect]
     Active Substance: ALLOPURINOL
     Indication: PRODUCT USED FOR UNKNOWN INDICATION
     Dosage: 300 MG, 1 IN 1 D
     Route: 048
     Dates: start: 20150303, end: 20150312
  6. DEXAMETHASONE. [Suspect]
     Active Substance: DEXAMETHASONE
     Indication: PRODUCT USED FOR UNKNOWN INDICATION
     Dosage: 40 MG, 1 IN 1 D
     Route: 048
     Dates: start: 20150305, end: 20150306
  7. XYZALL [Concomitant]
     Active Substance: LEVOCETIRIZINE DIHYDROCHLORIDE
     Dosage: 5 MG, UNK
     Route: 065
     Dates: start: 20150303
  8. XYZALL [Concomitant]
     Active Substance: LEVOCETIRIZINE DIHYDROCHLORIDE
     Dosage: 5 MG, UNK
     Route: 065
     Dates: start: 20150330, end: 20150402
  9. CEFOTAXIME [Suspect]
     Active Substance: CEFOTAXIME\CEFOTAXIME SODIUM
     Dosage: 2 G, 1 IN 8 HR
     Route: 042
     Dates: start: 20150330, end: 20150402
  10. ZYLORIC [Suspect]
     Active Substance: ALLOPURINOL
     Dosage: 100 MG, 1 IN 1 D
     Route: 048
     Dates: start: 20150313, end: 20150316
  11. ZYLORIC [Suspect]
     Active Substance: ALLOPURINOL
     Dosage: 300 MG, 1 IN 1 D
     Route: 048
     Dates: start: 20150330, end: 20150402
  12. NEULASTA [Suspect]
     Active Substance: PEGFILGRASTIM
     Dosage: 1 DF, UNK
     Route: 058
     Dates: start: 20150330, end: 20150402
  13. OXALIPLATIN. [Suspect]
     Active Substance: OXALIPLATIN
     Dosage: 270 MG, UNK
     Route: 042
     Dates: start: 20150330, end: 20150402
  14. DEXAMETHASONE. [Suspect]
     Active Substance: DEXAMETHASONE
     Dosage: 40 MG, 1 IN 1 D
     Route: 048
     Dates: start: 20150330, end: 20150402
  15. BACTRIM [Suspect]
     Active Substance: SULFAMETHOXAZOLE\TRIMETHOPRIM
     Indication: PRODUCT USED FOR UNKNOWN INDICATION
     Dosage: 0.5 DF, 1 IN 2 D
     Route: 048
     Dates: start: 20150303, end: 20150313
  16. CYTARABINE. [Suspect]
     Active Substance: CYTARABINE
     Indication: PRODUCT USED FOR UNKNOWN INDICATION
     Dosage: 4250 MG, 2 IN 1 D
     Route: 042
     Dates: start: 20150304, end: 20150518
  17. BACTRIM [Suspect]
     Active Substance: SULFAMETHOXAZOLE\TRIMETHOPRIM
     Dosage: 1 DF, 1 IN 2 D
     Route: 042
     Dates: start: 20150330, end: 20150402
  18. OXALIPLATIN. [Suspect]
     Active Substance: OXALIPLATIN
     Indication: MANTLE CELL LYMPHOMA
     Dosage: 270 MG, UNK
     Route: 042
     Dates: start: 20150303, end: 20150303
  19. ZELITREX [Suspect]
     Active Substance: VALACYCLOVIR HYDROCHLORIDE
     Indication: PRODUCT USED FOR UNKNOWN INDICATION
     Dosage: 500 MG, 2 IN 1 D
     Route: 048
     Dates: start: 20150303, end: 20150317
  20. ZOPHREN                            /00955301/ [Concomitant]
     Active Substance: ONDANSETRON
     Dosage: 80 MG, 2 IN 1 D
     Dates: start: 20150303
  21. ZELITREX [Suspect]
     Active Substance: VALACYCLOVIR HYDROCHLORIDE
     Dosage: 500 MG, 2 IN 1 D
     Route: 048
     Dates: start: 20150330, end: 20150402
  22. SOLU-MEDROL [Suspect]
     Active Substance: METHYLPREDNISOLONE SODIUM SUCCINATE
     Dosage: 80 MG, UNK
     Route: 042
     Dates: start: 20150330, end: 20150402
  23. ARACYTINE [Suspect]
     Active Substance: CYTARABINE
     Indication: PRODUCT USED FOR UNKNOWN INDICATION
     Dosage: 4250 MG, 2 IN 1 D
     Route: 042
     Dates: start: 20150518
  24. PARACETAMOL [Concomitant]
     Active Substance: ACETAMINOPHEN
     Dosage: 1 G, UNK
     Route: 065
     Dates: start: 20150303
  25. NEULASTA [Suspect]
     Active Substance: PEGFILGRASTIM
     Indication: PRODUCT USED FOR UNKNOWN INDICATION
     Dosage: 1 DF (6 MG) , UNK
     Route: 058
     Dates: start: 20150306, end: 20150306
  26. MABTHERA [Suspect]
     Active Substance: RITUXIMAB
     Indication: MANTLE CELL LYMPHOMA
     Dosage: 780 MG, UNK
     Route: 042
     Dates: start: 20150303, end: 20150303
  27. CEFOTAXIME [Suspect]
     Active Substance: CEFOTAXIME\CEFOTAXIME SODIUM
     Indication: PRODUCT USED FOR UNKNOWN INDICATION
     Dosage: 2 G, 1 IN 8 HR
     Route: 042
     Dates: start: 20150312, end: 20150314
  28. SOLU-MEDROL [Suspect]
     Active Substance: METHYLPREDNISOLONE SODIUM SUCCINATE
     Indication: PRODUCT USED FOR UNKNOWN INDICATION
     Dosage: 80 MG, UNK
     Route: 042
     Dates: start: 20150303, end: 20150304

REACTIONS (3)
  - Rash morbilliform [Recovered/Resolved]
  - Oedema peripheral [Recovered/Resolved]
  - Hyperthermia [Recovered/Resolved]

NARRATIVE: CASE EVENT DATE: 20150311
